FAERS Safety Report 4928229-4 (Version None)
Quarter: 2006Q1

REPORT INFORMATION
  Report Type: 
  Country: None (occurrence: None)
  Receive Date: 20060223
  Receipt Date: 20060201
  Transmission Date: 20060701
  Serious: Yes (Hospitalization)
  Sender: FDA-Public Use
  Company Number: FR200602000069

PATIENT
  Age: 85 Year
  Sex: Female

DRUGS (4)
  1. FORTEO [Suspect]
     Indication: OSTEOPOROSIS
     Dosage: 20 UG DAILY (1/D) SUBCUTANEOUS
     Route: 058
     Dates: start: 20040927
  2. FORTEO [Concomitant]
  3. LEVOTHYROXINE SODIUM [Concomitant]
  4. OROCAL (CALCIUM CARBONATE) [Concomitant]

REACTIONS (2)
  - FALL [None]
  - SPINAL FRACTURE [None]
